FAERS Safety Report 23835562 (Version 1)
Quarter: 2024Q2

REPORT INFORMATION
  Report Type: Spontaneous
  Country: HR (occurrence: HR)
  Receive Date: 20240509
  Receipt Date: 20240509
  Transmission Date: 20240716
  Serious: Yes (Other)
  Sender: FDA-Public Use
  Company Number: None

PATIENT
  Age: 16 Year
  Sex: Female

DRUGS (6)
  1. OXAZEPAM [Suspect]
     Active Substance: OXAZEPAM
     Indication: Product used for unknown indication
     Dosage: 42 TBL PRAXITEN OF 15 MG,
     Route: 048
     Dates: start: 202403, end: 202403
  2. ESCITALOPRAM OXALATE [Suspect]
     Active Substance: ESCITALOPRAM OXALATE
     Indication: Product used for unknown indication
     Dosage: 6 TBL ELICEA OF   10 MG,
     Route: 048
     Dates: start: 202403, end: 202403
  3. ARIPIPRAZOLE [Suspect]
     Active Substance: ARIPIPRAZOLE
     Indication: Product used for unknown indication
     Dosage: 2 TBL OF ARIPIPRAZOLE, THEY DON^T KNOW HOW MUCH
     Route: 048
     Dates: start: 202403, end: 202403
  4. CONTROLOC [Suspect]
     Active Substance: PANTOPRAZOLE SODIUM
     Indication: Product used for unknown indication
     Dosage: CONTROLOC 6 TBL.
     Route: 048
     Dates: start: 202403, end: 202403
  5. OXAZEPAM [Suspect]
     Active Substance: OXAZEPAM
     Indication: Product used for unknown indication
     Dosage: 24 OXAZEPAMS DO NOT KNOW THE STRENGTH,
     Route: 048
     Dates: start: 202403, end: 202403
  6. FLUPHENAZINE [Suspect]
     Active Substance: FLUPHENAZINE
     Indication: Product used for unknown indication
     Dosage: 18 TBL MODITEN, THEY DON^T KNOW HOW MUCH ,
     Route: 048
     Dates: start: 202403, end: 202403

REACTIONS (2)
  - Suicide attempt [Unknown]
  - Intentional overdose [Unknown]

NARRATIVE: CASE EVENT DATE: 20240301
